FAERS Safety Report 25673245 (Version 1)
Quarter: 2025Q3

REPORT INFORMATION
  Report Type: Spontaneous
  Country: CA (occurrence: CA)
  Receive Date: 20250813
  Receipt Date: 20250813
  Transmission Date: 20251021
  Serious: Yes (Other)
  Sender: CELLTRION
  Company Number: CA-CELLTRION INC.-2025CA027076

PATIENT

DRUGS (6)
  1. YUFLYMA [Suspect]
     Active Substance: ADALIMUMAB-AATY
     Indication: Ankylosing spondylitis
     Dosage: 40 MG, EVERY 14 DAYS
     Route: 058
     Dates: start: 20221220, end: 2024
  2. YUFLYMA [Suspect]
     Active Substance: ADALIMUMAB-AATY
  3. MELOXICAM [Concomitant]
     Active Substance: MELOXICAM
  4. ADVIL [Concomitant]
     Active Substance: IBUPROFEN
  5. TYLENOL [Concomitant]
     Active Substance: ACETAMINOPHEN
  6. GABAPENTIN [Concomitant]
     Active Substance: GABAPENTIN

REACTIONS (2)
  - Throat cancer [Unknown]
  - Intentional dose omission [Unknown]
